FAERS Safety Report 6077992-0 (Version None)
Quarter: 2009Q1

REPORT INFORMATION
  Report Type: 
  Country: None (occurrence: None)
  Receive Date: 20090213
  Receipt Date: 20090206
  Transmission Date: 20090719
  Serious: Yes (Other)
  Sender: FDA-Public Use
  Company Number: US-ELI_LILLY_AND_COMPANY-US200902001672

PATIENT
  Sex: Female

DRUGS (4)
  1. HUMALOG [Suspect]
     Dosage: UNK U, UNK
  2. HUMALOG [Suspect]
  3. HUMULIN R [Suspect]
     Indication: TYPE 1 DIABETES MELLITUS
  4. LANTUS [Concomitant]
     Indication: TYPE 1 DIABETES MELLITUS

REACTIONS (14)
  - ASTHENIA [None]
  - BLINDNESS [None]
  - BLOOD GLUCOSE INCREASED [None]
  - CATARACT [None]
  - DECREASED APPETITE [None]
  - DIABETIC RETINOPATHY [None]
  - EYE DISORDER [None]
  - EYE HAEMORRHAGE [None]
  - FATIGUE [None]
  - GAIT DISTURBANCE [None]
  - MUSCULAR WEAKNESS [None]
  - NERVOUSNESS [None]
  - SPINAL COLUMN STENOSIS [None]
  - VISUAL ACUITY REDUCED [None]
